FAERS Safety Report 8616894 (Version 3)
Quarter: 2012Q4

REPORT INFORMATION
  Report Type: 
  Country: JP (occurrence: JP)
  Receive Date: 20120615
  Receipt Date: 20120918
  Transmission Date: 20130627
  Serious: Yes (Death, Life-Threatening)
  Sender: FDA-Public Use
  Company Number: JP-ASTELLAS-2012US005392

PATIENT
  Age: 72 Year
  Sex: Male

DRUGS (3)
  1. AMBISOME [Suspect]
     Indication: FUNGAL INFECTION
     Dosage: 125 mg, UID/QD
     Route: 042
     Dates: start: 20101221, end: 20110104
  2. ISODINE [Concomitant]
     Indication: PRODUCT USED FOR UNKNOWN INDICATION
     Dosage: UNK
     Route: 065
  3. AMPHOTERICIN B [Concomitant]
     Indication: PRODUCT USED FOR UNKNOWN INDICATION
     Dosage: 2.3 mg/kg, UID/QD
     Route: 065

REACTIONS (1)
  - Liver disorder [Fatal]
